FAERS Safety Report 6815243-7 (Version None)
Quarter: 2010Q3

REPORT INFORMATION
  Report Type: 
  Country: None (occurrence: None)
  Receive Date: 20100701
  Receipt Date: 20100701
  Transmission Date: 20110219
  Serious: Yes (Other)
  Sender: FDA-Public Use
  Company Number: None

PATIENT
  Age: 29 Year
  Sex: Male
  Weight: 141.5223 kg

DRUGS (2)
  1. ADVAIR DISKUS 250/50 [Suspect]
     Indication: ASTHMA
     Dosage: 1 PUFF BID PO
     Route: 048
     Dates: start: 20050901, end: 20100630
  2. ADVAIR DISKUS 250/50 [Suspect]
     Indication: MULTIPLE ALLERGIES
     Dosage: 1 PUFF BID PO
     Route: 048
     Dates: start: 20050901, end: 20100630

REACTIONS (2)
  - CANDIDIASIS [None]
  - NO THERAPEUTIC RESPONSE [None]
